FAERS Safety Report 7270430-1 (Version None)
Quarter: 2011Q1

REPORT INFORMATION
  Report Type: 
  Country: None (occurrence: None)
  Receive Date: 20110202
  Receipt Date: 20110126
  Transmission Date: 20110831
  Serious: Yes (Hospitalization)
  Sender: FDA-Public Use
  Company Number: US-BRISTOL-MYERS SQUIBB COMPANY-15514201

PATIENT
  Age: 49 Year
  Sex: Female
  Weight: 58 kg

DRUGS (11)
  1. DASATINIB [Suspect]
     Indication: NON-SMALL CELL LUNG CANCER STAGE IV
     Dosage: INTERRUPTED ON 20-JAN-2011; ALSE RECEIVED 20MG BID ORAL LOT NO:9B44390 EXP DATE:MAR2012
     Route: 048
     Dates: start: 20101229
  2. MAGNESIUM OXIDE [Concomitant]
     Dosage: TAB
  3. SIMETHICONE [Concomitant]
     Dosage: PRN CHEWABLE TAB
  4. PROMETHAZINE HCL [Concomitant]
     Dosage: 1 DF: 25MG TAB 12.5MG Q6HRS 25MG RTL 1 SUPPOSITORY QD
  5. BISACODYL SUPPOSITORY [Concomitant]
     Dosage: 1 DF: 2 SUPPOSITORY 10MG RTL SUPP QD
  6. FENTANYL-100 [Concomitant]
     Dosage: 1 DF: 1 PATCH 100MCG Q 72 HRS
     Route: 062
  7. NORTRIPTYLINE HCL [Concomitant]
     Dosage: 25 MG CAP
  8. OXYCODONE HCL [Concomitant]
     Dosage: 1 DF: 3 TABS PRN 5 MG/APAP 325 MG
  9. RISPERIDONE [Concomitant]
     Dosage: 2 MG TAB
  10. DOCUSATE SODIUM + SENNA [Concomitant]
     Dosage: TAB PRN
  11. MEGESTROL ACETATE [Concomitant]
     Dosage: MEGESTROL SUSP 40MG/ML OML 800MG(20ML)QD

REACTIONS (5)
  - VOMITING [None]
  - DEHYDRATION [None]
  - FATIGUE [None]
  - ANAEMIA [None]
  - NAUSEA [None]
